FAERS Safety Report 22023074 (Version 3)
Quarter: 2023Q4

REPORT INFORMATION
  Report Type: Report from Study
  Country: JP (occurrence: JP)
  Receive Date: 20230222
  Receipt Date: 20231129
  Transmission Date: 20240110
  Serious: Yes (Hospitalization)
  Sender: FDA-Public Use
  Company Number: JP-ABBVIE-4314748

PATIENT
  Age: 54 Year
  Sex: Male
  Weight: 80 kg

DRUGS (9)
  1. VENCLEXTA [Suspect]
     Active Substance: VENETOCLAX
     Indication: Acute myeloid leukaemia
     Dosage: LAST ADMIN DATE: 2021
     Route: 048
     Dates: start: 20210415
  2. VENCLEXTA [Suspect]
     Active Substance: VENETOCLAX
     Indication: Acute myeloid leukaemia
     Route: 048
     Dates: start: 20210414, end: 20210414
  3. VENCLEXTA [Suspect]
     Active Substance: VENETOCLAX
     Indication: Acute myeloid leukaemia
     Route: 048
     Dates: start: 20210413, end: 20210413
  4. VENCLEXTA [Suspect]
     Active Substance: VENETOCLAX
     Indication: Acute myeloid leukaemia
     Route: 048
     Dates: start: 20210709, end: 20210715
  5. FEBUXOSTAT [Concomitant]
     Active Substance: FEBUXOSTAT
     Indication: Prophylaxis
     Route: 065
     Dates: start: 20210412, end: 20210418
  6. FEBUXOSTAT [Concomitant]
     Active Substance: FEBUXOSTAT
     Indication: Prophylaxis
     Route: 048
     Dates: start: 20210412, end: 20210418
  7. AZACITIDINE [Concomitant]
     Active Substance: AZACITIDINE
     Indication: Acute myeloid leukaemia
     Route: 065
     Dates: start: 20210413, end: 20210419
  8. ACYCLOVIR [Concomitant]
     Active Substance: ACYCLOVIR
     Indication: Infection prophylaxis
     Route: 048
     Dates: start: 20210426
  9. FLUCONAZOLE [Concomitant]
     Active Substance: FLUCONAZOLE
     Indication: Infection prophylaxis
     Route: 048
     Dates: start: 20201219, end: 20210707

REACTIONS (2)
  - Pyomyositis [Recovered/Resolved]
  - Sepsis [Recovered/Resolved]

NARRATIVE: CASE EVENT DATE: 20210507
